FAERS Safety Report 7585665-8 (Version None)
Quarter: 2011Q2

REPORT INFORMATION
  Report Type: 
  Country: None (occurrence: None)
  Receive Date: 20110629
  Receipt Date: 20110629
  Transmission Date: 20111010
  Serious: Yes (Disabling)
  Sender: FDA-Public Use
  Company Number: None

PATIENT
  Age: 46 Year
  Sex: Male
  Weight: 73.4827 kg

DRUGS (6)
  1. LEXAPRO [Suspect]
     Indication: ANALGESIC THERAPY
     Dosage: 2.5 MG 3 TIMES ORAL
     Route: 048
     Dates: start: 20110402
  2. LEXAPRO [Suspect]
     Indication: OFF LABEL USE
     Dosage: 2.5 MG 3 TIMES ORAL
     Route: 048
     Dates: start: 20110402
  3. LEXAPRO [Suspect]
     Indication: ANALGESIC THERAPY
     Dosage: 2.5 MG 3 TIMES ORAL
     Route: 048
     Dates: start: 20110403
  4. LEXAPRO [Suspect]
     Indication: OFF LABEL USE
     Dosage: 2.5 MG 3 TIMES ORAL
     Route: 048
     Dates: start: 20110403
  5. LEXAPRO [Suspect]
     Indication: ANALGESIC THERAPY
     Dosage: 2.5 MG 3 TIMES ORAL
     Route: 048
     Dates: start: 20110404
  6. LEXAPRO [Suspect]
     Indication: OFF LABEL USE
     Dosage: 2.5 MG 3 TIMES ORAL
     Route: 048
     Dates: start: 20110404

REACTIONS (2)
  - EAR DISCOMFORT [None]
  - TINNITUS [None]
